FAERS Safety Report 7669120-2 (Version None)
Quarter: 2011Q3

REPORT INFORMATION
  Report Type: 
  Country: None (occurrence: None)
  Receive Date: 20110808
  Receipt Date: 20110802
  Transmission Date: 20111222
  Serious: Yes (Death, Other)
  Sender: FDA-Public Use
  Company Number: JP-ROCHE-584253

PATIENT
  Sex: Male
  Weight: 70 kg

DRUGS (11)
  1. BEVACIZUMAB [Suspect]
     Indication: COLON CANCER METASTATIC
     Route: 041
     Dates: start: 20071221, end: 20080807
  2. FLUOROURACIL [Suspect]
     Dosage: INTRAVENOUS DRIP
     Route: 042
     Dates: start: 20070927, end: 20080807
  3. DEXAMETHASONE SODIUM PHOSPHATE [Concomitant]
     Dosage: ROUTE: INJECTABLE (NOT OTHERWISE SPECIFIED)
     Route: 050
     Dates: start: 20070927
  4. MAGMITT [Concomitant]
     Route: 048
     Dates: start: 20070927
  5. FLUOROURACIL [Suspect]
     Indication: COLON CANCER METASTATIC
     Dosage: INTRAVENOUS BOLUS
     Route: 042
     Dates: start: 20070927, end: 20080807
  6. OXALIPLATIN [Suspect]
     Indication: COLON CANCER METASTATIC
     Route: 041
     Dates: start: 20070927, end: 20080807
  7. TAMSULOSIN HCL [Concomitant]
     Dosage: DRUG NAMR: HARNAL D
     Route: 048
     Dates: start: 20070927
  8. DOMPERIDONE [Concomitant]
     Route: 048
     Dates: start: 20070927
  9. KYTRIL [Concomitant]
     Dates: start: 20070927
  10. LEUCOVORIN CALCIUM [Suspect]
     Indication: COLON CANCER METASTATIC
     Route: 041
     Dates: start: 20070927, end: 20080807
  11. LEUCOVORIN CALCIUM [Suspect]
     Route: 065

REACTIONS (4)
  - MULTI-ORGAN FAILURE [None]
  - MELAENA [None]
  - INTERSTITIAL LUNG DISEASE [None]
  - LOBAR PNEUMONIA [None]
